FAERS Safety Report 17826259 (Version 4)
Quarter: 2020Q3

REPORT INFORMATION
  Report Type: Report from Study
  Country: PA (occurrence: PA)
  Receive Date: 20200527
  Receipt Date: 20200923
  Transmission Date: 20201102
  Serious: Yes (Hospitalization, Other)
  Sender: FDA-Public Use
  Company Number: PA-INCYTE CORPORATION-2019IN007226

PATIENT

DRUGS (1)
  1. JAKAVI [Suspect]
     Active Substance: RUXOLITINIB
     Indication: PRODUCT USED FOR UNKNOWN INDICATION
     Dosage: 15 MG
     Route: 065

REACTIONS (19)
  - Spinal disorder [Unknown]
  - Ill-defined disorder [Unknown]
  - Aortic stenosis [Unknown]
  - SARS-CoV-2 test positive [Unknown]
  - Herpes virus infection [Recovering/Resolving]
  - Eating disorder [Unknown]
  - Fatigue [Unknown]
  - Vomiting [Unknown]
  - Diabetes mellitus [Unknown]
  - Inappropriate schedule of product administration [Unknown]
  - Malaise [Unknown]
  - Blood pressure abnormal [Unknown]
  - Asthenia [Unknown]
  - Nervousness [Unknown]
  - Dyspnoea [Unknown]
  - Lung disorder [Unknown]
  - Dehydration [Unknown]
  - Cardiac disorder [Unknown]
  - Diarrhoea [Unknown]
